FAERS Safety Report 13359272 (Version 1)
Quarter: 2017Q1

REPORT INFORMATION
  Report Type: Report from Study
  Country: US (occurrence: US)
  Receive Date: 20170322
  Receipt Date: 20170322
  Transmission Date: 20170429
  Serious: Yes (Hospitalization)
  Sender: FDA-Public Use
  Company Number: US-AMGEN-USASL2017041217

PATIENT
  Age: 54 Year
  Sex: Female

DRUGS (1)
  1. REPATHA [Suspect]
     Active Substance: EVOLOCUMAB
     Indication: HYPERCHOLESTEROLAEMIA
     Dosage: 140 MG, TWICE MONTHLY
     Route: 065
     Dates: start: 201603

REACTIONS (5)
  - Pleural effusion [Recovered/Resolved]
  - Urinary tract infection [Recovered/Resolved]
  - Influenza [Recovered/Resolved]
  - Blood creatine abnormal [Recovered/Resolved]
  - Intentional product misuse [Unknown]
